FAERS Safety Report 11107495 (Version 1)
Quarter: 2015Q2

REPORT INFORMATION
  Report Type: Spontaneous
  Country: BR (occurrence: BR)
  Receive Date: 20150512
  Receipt Date: 20150512
  Transmission Date: 20150821
  Serious: Yes (Other)
  Sender: FDA-Public Use
  Company Number: BR-BRISTOL-MYERS SQUIBB COMPANY-BMS-2015-029238

PATIENT
  Sex: Female
  Weight: 78 kg

DRUGS (18)
  1. NATRILIX                           /00340101/ [Concomitant]
     Indication: CARDIAC DISORDER
     Route: 065
  2. NEUTROFER [Concomitant]
     Active Substance: FERROUS BISGLYCINATE
     Indication: GASTROINTESTINAL DISORDER
     Route: 065
  3. BROMAZEPAM [Concomitant]
     Active Substance: BROMAZEPAM
     Indication: SLEEP DISORDER
  4. PHARMATON                          /00124801/ [Concomitant]
     Indication: PRODUCT USED FOR UNKNOWN INDICATION
     Route: 065
  5. PROTOS                             /00737201/ [Concomitant]
     Active Substance: STRONTIUM RANELATE
     Indication: BONE DISORDER
     Route: 065
  6. METFORMIN HYDROCHLORIDE. [Suspect]
     Active Substance: METFORMIN HYDROCHLORIDE
     Indication: BLOOD GLUCOSE INCREASED
     Dosage: 750 MG, QD
     Route: 048
  7. ATACAND HCT [Suspect]
     Active Substance: CANDESARTAN CILEXETIL\HYDROCHLOROTHIAZIDE
     Indication: BLOOD GLUCOSE INCREASED
     Dosage: UNK
     Route: 048
     Dates: start: 2006, end: 2008
  8. CRESTOR [Suspect]
     Active Substance: ROSUVASTATIN CALCIUM
     Indication: BLOOD CHOLESTEROL INCREASED
     Dosage: 10 MG, UNK
     Route: 048
     Dates: start: 2006
  9. ATACAND COMB [Suspect]
     Active Substance: CANDESARTAN CILEXETIL\FELODIPINE
     Indication: BLOOD PRESSURE INCREASED
     Dosage: UNK
     Route: 048
     Dates: start: 2008
  10. PROCORALAN [Concomitant]
     Active Substance: IVABRADINE
     Indication: CARDIAC DISORDER
     Route: 065
  11. ZETIA [Concomitant]
     Active Substance: EZETIMIBE
     Indication: BLOOD CHOLESTEROL INCREASED
     Route: 065
  12. ONGLYZA [Suspect]
     Active Substance: SAXAGLIPTIN HYDROCHLORIDE
     Indication: BLOOD GLUCOSE INCREASED
     Dosage: 5 MG, UNK
     Route: 048
  13. FLUNARIN [Concomitant]
     Indication: NERVOUS SYSTEM DISORDER
     Route: 065
  14. MONOCORDIL [Concomitant]
     Active Substance: ISOSORBIDE MONONITRATE
     Indication: CARDIAC DISORDER
     Route: 065
  15. BROMAZEPAM [Concomitant]
     Active Substance: BROMAZEPAM
     Indication: SEDATION
     Route: 065
  16. VASTAREL [Concomitant]
     Active Substance: TRIMETAZIDINE DIHYDROCHLORIDE
     Indication: CARDIAC DISORDER
     Route: 065
  17. HYDERGINE                          /00436902/ [Concomitant]
     Indication: PRODUCT USED FOR UNKNOWN INDICATION
     Route: 065
  18. JANUMET [Concomitant]
     Active Substance: METFORMIN HYDROCHLORIDE\SITAGLIPTIN PHOSPHATE
     Indication: BLOOD GLUCOSE INCREASED
     Route: 065

REACTIONS (6)
  - Hypoacusis [Unknown]
  - Glucose tolerance impaired [Recovered/Resolved]
  - Hypertension [Recovered/Resolved]
  - Abdominal discomfort [Recovered/Resolved]
  - Cardiac disorder [Unknown]
  - Nervousness [Recovered/Resolved]

NARRATIVE: CASE EVENT DATE: 2009
